FAERS Safety Report 6824903-3 (Version None)
Quarter: 2010Q3

REPORT INFORMATION
  Report Type: 
  Country: None (occurrence: None)
  Receive Date: 20100708
  Receipt Date: 20061127
  Transmission Date: 20110219
  Serious: No
  Sender: FDA-Public Use
  Company Number: US-PFIZER INC-2006148862

PATIENT
  Sex: Female
  Weight: 47.63 kg

DRUGS (6)
  1. CHANTIX [Suspect]
     Dates: start: 20061114
  2. RANITIDINE [Concomitant]
  3. MOBIC [Concomitant]
  4. ALL OTHER THERAPEUTIC PRODUCTS [Concomitant]
  5. CALCIUM CARBONATE [Concomitant]
  6. VITAMINS [Concomitant]

REACTIONS (3)
  - CHILLS [None]
  - NAUSEA [None]
  - TREMOR [None]
